FAERS Safety Report 15905365 (Version 2)
Quarter: 2019Q1

REPORT INFORMATION
  Report Type: Spontaneous
  Country: US (occurrence: US)
  Receive Date: 20190204
  Receipt Date: 20190226
  Transmission Date: 20190417
  Serious: No
  Sender: FDA-Public Use
  Company Number: US-BAYER-2019-023391

PATIENT
  Age: 25 Year
  Sex: Female

DRUGS (2)
  1. KYLEENA [Suspect]
     Active Substance: LEVONORGESTREL
     Indication: CONTRACEPTION
     Dosage: 17.5 MCG/24HR, CONT
     Route: 015
     Dates: start: 20180824, end: 20181023
  2. SKYLA [Suspect]
     Active Substance: LEVONORGESTREL
     Dosage: 14 MCG/24HR, CONT
     Route: 015
     Dates: start: 20150618, end: 20180824

REACTIONS (4)
  - Therapeutic response unexpected [None]
  - Acne [None]
  - Amenorrhoea [None]
  - Premenstrual syndrome [None]

NARRATIVE: CASE EVENT DATE: 2018
